FAERS Safety Report 4379573-3 (Version None)
Quarter: 2004Q2

REPORT INFORMATION
  Report Type: 
  Country: None (occurrence: None)
  Receive Date: 20040415
  Receipt Date: 20040126
  Transmission Date: 20050107
  Serious: No
  Sender: FDA-Public Use
  Company Number: 2004-01-1897

PATIENT
  Sex: Female

DRUGS (1)
  1. CLARINEX [Suspect]
     Indication: URTICARIA
     Dosage: 1 TABLET ORAL
     Route: 048
     Dates: start: 20040122

REACTIONS (4)
  - FATIGUE [None]
  - FEELING ABNORMAL [None]
  - IMMOBILE [None]
  - SOMNOLENCE [None]
